FAERS Safety Report 7337588-7 (Version None)
Quarter: 2011Q1

REPORT INFORMATION
  Report Type: 
  Country: None (occurrence: None)
  Receive Date: 20110228
  Receipt Date: 20110215
  Transmission Date: 20110831
  Serious: Yes (Hospitalization)
  Sender: FDA-Public Use
  Company Number: LEO-2011-00172

PATIENT
  Age: 24 Year
  Sex: Male

DRUGS (7)
  1. FLOXACILLIN SODIUM [Concomitant]
  2. WARFARIN (WARFARIN) [Concomitant]
  3. GENTAMICIN [Concomitant]
  4. VANCOMYCIN [Concomitant]
  5. INNOHEP [Suspect]
     Indication: DEEP VEIN THROMBOSIS
     Dosage: 175 IU/KG (175 IU/KG, 1 IN 1 D), SUBCUTANEOUS
     Route: 058
  6. INNOHEP [Suspect]
     Indication: PULMONARY EMBOLISM
     Dosage: 175 IU/KG (175 IU/KG, 1 IN 1 D), SUBCUTANEOUS
     Route: 058
  7. BENZYLPENCILLIN) (BENZYLPENCILLIN) [Concomitant]

REACTIONS (12)
  - THROMBOPHLEBITIS SEPTIC [None]
  - SPLENOMEGALY [None]
  - BLOOD SODIUM DECREASED [None]
  - BLOOD POTASSIUM DECREASED [None]
  - RIGHT VENTRICULAR HYPERTROPHY [None]
  - BLOOD CREATININE INCREASED [None]
  - PLATELET COUNT DECREASED [None]
  - TRICUSPID VALVE INCOMPETENCE [None]
  - TOXICOLOGIC TEST ABNORMAL [None]
  - SINUS TACHYCARDIA [None]
  - STREPTOCOCCAL INFECTION [None]
  - BLOOD PH INCREASED [None]
